FAERS Safety Report 9634075 (Version 1)
Quarter: 2013Q4

REPORT INFORMATION
  Report Type: Spontaneous
  Country: FR (occurrence: FR)
  Receive Date: 20131021
  Receipt Date: 20131021
  Transmission Date: 20140711
  Serious: Yes (Hospitalization)
  Sender: FDA-Public Use
  Company Number: FR-NOVOPROD-390175

PATIENT
  Age: 73 Year
  Sex: Female

DRUGS (3)
  1. VICTOZA [Suspect]
     Indication: PRODUCT USED FOR UNKNOWN INDICATION
     Dosage: UNK
     Route: 065
  2. METFORMINE [Concomitant]
     Dosage: UNK
     Route: 065
  3. DIAMICRON [Concomitant]
     Dosage: UNK
     Route: 065

REACTIONS (1)
  - Chest pain [Unknown]
